FAERS Safety Report 21715071 (Version 2)
Quarter: 2022Q4

REPORT INFORMATION
  Report Type: Spontaneous
  Country: US (occurrence: US)
  Receive Date: 20221212
  Receipt Date: 20221216
  Transmission Date: 20230113
  Serious: Yes (Other)
  Sender: FDA-Public Use
  Company Number: US-PFIZER INC-202201360982

PATIENT
  Age: 58 Year
  Sex: Female

DRUGS (1)
  1. PAXLOVID [Suspect]
     Active Substance: NIRMATRELVIR\RITONAVIR
     Indication: COVID-19 treatment
     Dosage: 3 DF
     Dates: start: 20221207

REACTIONS (5)
  - Choking [Unknown]
  - Vomiting [Unknown]
  - Cough [Unknown]
  - Dry mouth [Unknown]
  - Malaise [Unknown]

NARRATIVE: CASE EVENT DATE: 20221201
